FAERS Safety Report 10517055 (Version 1)
Quarter: 2014Q4

REPORT INFORMATION
  Report Type: Spontaneous
  Country: US (occurrence: US)
  Receive Date: 20141014
  Receipt Date: 20141014
  Transmission Date: 20150528
  Serious: No
  Sender: FDA-Public Use
  Company Number: US-ELI_LILLY_AND_COMPANY-US201410002696

PATIENT
  Sex: Male

DRUGS (7)
  1. TRAMADOL [Concomitant]
     Active Substance: TRAMADOL
  2. NAPROXEN. [Concomitant]
     Active Substance: NAPROXEN
  3. ULORIC [Concomitant]
     Active Substance: FEBUXOSTAT
  4. METOPROLOL [Concomitant]
     Active Substance: METOPROLOL
  5. BENICAR [Concomitant]
     Active Substance: OLMESARTAN MEDOXOMIL
  6. FUROSEMIDE. [Concomitant]
     Active Substance: FUROSEMIDE
     Dosage: UNK, EACH EVENING
  7. INSULIN HUMAN [Suspect]
     Active Substance: INSULIN HUMAN
     Indication: DIABETES MELLITUS
     Dosage: 17 U, QD
     Route: 065
     Dates: start: 1984

REACTIONS (4)
  - Hypoacusis [Unknown]
  - Blood glucose increased [Unknown]
  - Intentional product use issue [Unknown]
  - Visual acuity reduced [Unknown]

NARRATIVE: CASE EVENT DATE: 1984
